FAERS Safety Report 14378815 (Version 2)
Quarter: 2018Q2

REPORT INFORMATION
  Report Type: Report from Study
  Country: CA (occurrence: CA)
  Receive Date: 20180112
  Receipt Date: 20180404
  Transmission Date: 20180711
  Serious: Yes (Hospitalization)
  Sender: FDA-Public Use
  Company Number: CA-ROCHE-2051627

PATIENT
  Age: 52 Year
  Sex: Female

DRUGS (1)
  1. ACTEMRA [Suspect]
     Active Substance: TOCILIZUMAB
     Indication: RHEUMATOID ARTHRITIS
     Route: 042
     Dates: start: 20150811

REACTIONS (4)
  - Contusion [Unknown]
  - Mania [Recovered/Resolved]
  - Drug interaction [Unknown]
  - Weight abnormal [Unknown]

NARRATIVE: CASE EVENT DATE: 20171229
